FAERS Safety Report 24984601 (Version 2)
Quarter: 2025Q3

REPORT INFORMATION
  Report Type: Spontaneous
  Country: US (occurrence: US)
  Receive Date: 20250219
  Receipt Date: 20250820
  Transmission Date: 20251021
  Serious: No
  Sender: SUNOVION
  Company Number: US-SMPA-2025SPA000972AA

PATIENT
  Age: 42 Year
  Sex: Female

DRUGS (5)
  1. MYFEMBREE [Suspect]
     Active Substance: ESTRADIOL HEMIHYDRATE\NORETHINDRONE ACETATE\RELUGOLIX
     Indication: Abnormal uterine bleeding
     Dosage: 1 DF (40/1/0.5MG TABLETS), QD
     Route: 048
     Dates: start: 202408
  2. MYFEMBREE [Suspect]
     Active Substance: ESTRADIOL HEMIHYDRATE\NORETHINDRONE ACETATE\RELUGOLIX
     Indication: Vaginal haemorrhage
  3. MYFEMBREE [Suspect]
     Active Substance: ESTRADIOL HEMIHYDRATE\NORETHINDRONE ACETATE\RELUGOLIX
     Indication: Uterine leiomyoma
  4. IRON [Concomitant]
     Active Substance: IRON
  5. KEPPRA [Concomitant]
     Active Substance: LEVETIRACETAM

REACTIONS (1)
  - Vaginal haemorrhage [Not Recovered/Not Resolved]

NARRATIVE: CASE EVENT DATE: 20241204
